FAERS Safety Report 9476397 (Version 1)
Quarter: 2013Q3

REPORT INFORMATION
  Report Type: Spontaneous
  Country: US (occurrence: US)
  Receive Date: 20130826
  Receipt Date: 20130826
  Transmission Date: 20140515
  Serious: Yes (Hospitalization)
  Sender: FDA-Public Use
  Company Number: US-SANOFI-AVENTIS-2013SA084432

PATIENT
  Sex: Male

DRUGS (1)
  1. LANTUS [Suspect]
     Route: 051

REACTIONS (2)
  - Renal impairment [Recovered/Resolved]
  - Blood creatinine increased [Recovered/Resolved]
